FAERS Safety Report 23050040 (Version 1)
Quarter: 2023Q4

REPORT INFORMATION
  Report Type: Spontaneous
  Country: CA (occurrence: CA)
  Receive Date: 20231010
  Receipt Date: 20231010
  Transmission Date: 20240109
  Serious: Yes (Death)
  Sender: FDA-Public Use
  Company Number: CA-FreseniusKabi-FK202315845

PATIENT
  Age: 55 Year
  Sex: Male

DRUGS (6)
  1. ETOPOSIDE [Suspect]
     Active Substance: ETOPOSIDE
     Indication: Acute megakaryocytic leukaemia
     Dosage: DOSAGE FORM: NOT SPECIFIED
     Route: 065
  2. THYMOCYTE IMMUNE GLOBULIN NOS [Suspect]
     Active Substance: THYMOCYTE IMMUNE GLOBULIN NOS
     Indication: Acute megakaryocytic leukaemia
  3. CYTARABINE [Suspect]
     Active Substance: CYTARABINE
     Indication: Acute megakaryocytic leukaemia
     Route: 065
  4. IDARUBICIN [Suspect]
     Active Substance: IDARUBICIN
     Indication: Acute megakaryocytic leukaemia
  5. IMATINIB [Suspect]
     Active Substance: IMATINIB
     Indication: Acute megakaryocytic leukaemia
     Route: 065
  6. TASIGNA [Suspect]
     Active Substance: NILOTINIB
     Indication: Product used for unknown indication

REACTIONS (3)
  - Fungal infection [Fatal]
  - Intentional product use issue [Fatal]
  - Neoplasm progression [Fatal]
